FAERS Safety Report 21891309 (Version 2)
Quarter: 2023Q1

REPORT INFORMATION
  Report Type: Report from Study
  Country: GB (occurrence: GB)
  Receive Date: 20230120
  Receipt Date: 20230130
  Transmission Date: 20230417
  Serious: Yes (Hospitalization)
  Sender: FDA-Public Use
  Company Number: GB-ROCHE-3257830

PATIENT
  Age: 76 Year
  Sex: Female

DRUGS (32)
  1. TRASTUZUMAB [Suspect]
     Active Substance: TRASTUZUMAB
     Indication: Neoplasm malignant
     Dosage: START: 06-NOV-2017, OTHER
     Route: 042
  2. TRASTUZUMAB [Suspect]
     Active Substance: TRASTUZUMAB
     Indication: Breast cancer metastatic
     Dosage: START: 04-DEC-2017, UNK (3XW) (EVERY 3 WEEKS)
     Route: 042
  3. PERTUZUMAB [Suspect]
     Active Substance: PERTUZUMAB
     Indication: Breast cancer metastatic
     Dosage: START: 06-NOV-2017, UNK (OTHER)
     Route: 042
  4. PERTUZUMAB [Suspect]
     Active Substance: PERTUZUMAB
     Indication: Neoplasm malignant
     Dosage: START: 04-DEC-2017, UNK (3XW) (EVERY 3 WEEKS)
     Route: 042
  5. CALCIUM CARBONATE\CHOLECALCIFEROL [Concomitant]
     Active Substance: CALCIUM CARBONATE\CHOLECALCIFEROL
     Dosage: START: 23-APR-2019, UNK BID (1 TABLET)
     Route: 048
  6. CALCIUM CARBONATE\CHOLECALCIFEROL [Concomitant]
     Active Substance: CALCIUM CARBONATE\CHOLECALCIFEROL
     Dosage: START: 08-NOV-2019, UNK
     Route: 065
  7. AMLODIPINE [Concomitant]
     Active Substance: AMLODIPINE BESYLATE
     Dosage: 10 MILLIGRAM, QD
     Route: 048
  8. ATENOLOL [Concomitant]
     Active Substance: ATENOLOL
     Dosage: 500 MILLIGRAM, QD
     Route: 048
     Dates: start: 19930118
  9. ATORVASTATIN [Concomitant]
     Active Substance: ATORVASTATIN
     Dosage: 10 MILLIGRAM, QD
     Route: 048
     Dates: start: 20120612
  10. BETAMETHASONE [Concomitant]
     Active Substance: BETAMETHASONE
     Dosage: START: 23-APR-2019, 1 PERCENT, QOD
     Route: 061
  11. IBUPROFEN [Concomitant]
     Active Substance: IBUPROFEN
     Dosage: 400 MILLIGRAM
     Route: 048
  12. CLARITHROMYCIN [Concomitant]
     Active Substance: CLARITHROMYCIN
     Dosage: 2 MILLIGRAM
     Route: 065
  13. CODEINE PHOSPHATE [Concomitant]
     Active Substance: CODEINE PHOSPHATE
     Dosage: 60 MILLIGRAM, QID
     Route: 048
  14. CHOLECALCIFEROL [Concomitant]
     Active Substance: CHOLECALCIFEROL
     Dosage: 800 MILLIGRAM
     Route: 048
     Dates: start: 20040705
  15. DEXAMETHASONE [Concomitant]
     Active Substance: DEXAMETHASONE
     Dosage: UNK
     Route: 065
  16. DOCUSATE SODIUM [Concomitant]
     Active Substance: DOCUSATE SODIUM
     Dosage: START: 03-NOV-2019, 500 MILLIGRAM
     Route: 065
     Dates: end: 20191107
  17. DOCUSATE SODIUM [Concomitant]
     Active Substance: DOCUSATE SODIUM
     Dosage: START: 23-APR-2019, 200 MILLIGRAM, BID
     Route: 048
  18. FUROSEMIDE [Concomitant]
     Active Substance: FUROSEMIDE
     Dosage: 40 MILLIGRAM
     Route: 048
  19. LANSOPRAZOLE [Concomitant]
     Active Substance: LANSOPRAZOLE
     Indication: Dyspepsia
     Dosage: START: 07-NOV-2019, 100 MILLIGRAM
     Route: 048
     Dates: end: 20191126
  20. LANSOPRAZOLE [Concomitant]
     Active Substance: LANSOPRAZOLE
     Indication: Dyspepsia
     Dosage: UNK
     Route: 065
  21. POLYETHYLENE GLYCOLS [Concomitant]
     Active Substance: POLYETHYLENE GLYCOLS
     Indication: Constipation
     Dosage: UNK QD 1 OTHER
     Route: 048
  22. METOCLOPRAMIDE [Concomitant]
     Active Substance: METOCLOPRAMIDE
     Indication: Vomiting
     Dosage: UNK
     Route: 065
  23. METOCLOPRAMIDE [Concomitant]
     Active Substance: METOCLOPRAMIDE
     Indication: Nausea
     Dosage: 10 MILLIGRAM, TID
     Route: 048
  24. NAPROXEN [Concomitant]
     Active Substance: NAPROXEN
     Dosage: START: 08-APR-2019, UNK
     Route: 065
     Dates: end: 20190415
  25. ONDANSETRON [Concomitant]
     Active Substance: ONDANSETRON
     Dosage: START: 23-APR-2019, 4 MILLIGRAM
     Route: 048
     Dates: end: 20190430
  26. MORPHINE SULFATE [Concomitant]
     Active Substance: MORPHINE SULFATE
     Dosage: 400 MILLIGRAM (OTHER)
     Route: 048
  27. OXYCODONE [Concomitant]
     Active Substance: OXYCODONE
     Dosage: START: 23-APR-2019, 5 MILLIGRAM
     Route: 065
     Dates: end: 20190430
  28. OXYCODONE [Concomitant]
     Active Substance: OXYCODONE
     Dosage: START: 23-APR-2019, 5 MILLIGRAM
     Route: 065
     Dates: end: 20190430
  29. ACETAMINOPHEN [Concomitant]
     Active Substance: ACETAMINOPHEN
     Indication: Analgesic therapy
     Dosage: 500 MILLIGRAM
     Route: 048
     Dates: start: 20040705
  30. RAMIPRIL [Concomitant]
     Active Substance: RAMIPRIL
     Indication: Hypertension
     Dosage: START: 07-NOV-2019, 2.5 MILLIGRAM, QD
     Route: 048
  31. SENNA [Concomitant]
     Active Substance: SENNA LEAF\SENNOSIDES\SENNOSIDES A AND B
     Dosage: 7.5 MILLIGRAM, QD
     Route: 048
  32. TINZAPARIN [Concomitant]
     Active Substance: TINZAPARIN
     Dosage: START: 12-APR-2019, UNK, QD
     Route: 058

REACTIONS (1)
  - Pathological fracture [Recovered/Resolved with Sequelae]

NARRATIVE: CASE EVENT DATE: 20190404
